FAERS Safety Report 7883765-6 (Version None)
Quarter: 2011Q4

REPORT INFORMATION
  Report Type: 
  Country: None (occurrence: None)
  Receive Date: 20111102
  Receipt Date: 20111028
  Transmission Date: 20120403
  Serious: Yes (Hospitalization)
  Sender: FDA-Public Use
  Company Number: JP-EISAI INC-E2020-03688-CLI-JP

PATIENT
  Sex: Male
  Weight: 56 kg

DRUGS (13)
  1. ARICEPT [Suspect]
     Dosage: COMMERCIAL ARICEPT 5 MG DAILY
     Route: 048
     Dates: start: 20081114
  2. MEXITIL [Concomitant]
     Route: 048
     Dates: start: 20070511
  3. LASIX [Concomitant]
     Route: 048
     Dates: start: 20090616, end: 20110830
  4. TORSEMIDE [Concomitant]
     Route: 048
     Dates: start: 20100420
  5. SUCRALFATE [Concomitant]
     Route: 048
     Dates: start: 20090418
  6. WARFARIN SODIUM [Concomitant]
     Route: 048
     Dates: start: 20070511, end: 20110830
  7. TANATRIL [Concomitant]
     Route: 048
     Dates: start: 20090909
  8. ARICEPT [Suspect]
     Route: 048
     Dates: start: 20100123
  9. PLETAL [Concomitant]
     Route: 048
     Dates: start: 20070511, end: 20110830
  10. RABEPRAZOLE SODIUM [Concomitant]
     Route: 048
     Dates: start: 20090418
  11. ARICEPT [Suspect]
     Indication: DEMENTIA ALZHEIMER'S TYPE
     Route: 048
     Dates: start: 20080318, end: 20081113
  12. BISOPROLOL FUMARATE [Concomitant]
     Route: 048
  13. PRADAXA [Concomitant]
     Route: 048
     Dates: start: 20110301

REACTIONS (2)
  - ANAEMIA [None]
  - GAZE PALSY [None]
